FAERS Safety Report 11076782 (Version 2)
Quarter: 2015Q3

REPORT INFORMATION
  Report Type: Report from Study
  Country: CO (occurrence: CO)
  Receive Date: 20150429
  Receipt Date: 20150813
  Transmission Date: 20151125
  Serious: Yes (Hospitalization, Disabling)
  Sender: FDA-Public Use
  Company Number: CO-BAYER-2015-179271

PATIENT
  Age: 27 Year
  Sex: Male

DRUGS (1)
  1. BETAFERON [Suspect]
     Active Substance: INTERFERON BETA-1B
     Indication: MULTIPLE SCLEROSIS
     Dosage: 1 DF, QOD
     Route: 058
     Dates: start: 20140717

REACTIONS (10)
  - Aggression [None]
  - Drug ineffective [Not Recovered/Not Resolved]
  - Coordination abnormal [None]
  - Gait disturbance [Unknown]
  - Mental disorder [None]
  - Ataxia [None]
  - Multiple sclerosis relapse [Unknown]
  - Multiple sclerosis relapse [None]
  - Hypoaesthesia [Unknown]
  - Abasia [None]

NARRATIVE: CASE EVENT DATE: 2015
